FAERS Safety Report 7518914-2 (Version None)
Quarter: 2011Q2

REPORT INFORMATION
  Report Type: 
  Country: None (occurrence: None)
  Receive Date: 20110602
  Receipt Date: 20110524
  Transmission Date: 20111010
  Serious: Yes (Other)
  Sender: FDA-Public Use
  Company Number: US-AMGEN-USASP2011026917

PATIENT
  Sex: Female

DRUGS (3)
  1. HUMIRA [Concomitant]
  2. ENBREL [Suspect]
     Indication: PSORIASIS
  3. ENBREL [Suspect]
     Indication: PSORIATIC ARTHROPATHY
     Dates: start: 20030101

REACTIONS (7)
  - ABASIA [None]
  - DIABETES MELLITUS [None]
  - HEART RATE ABNORMAL [None]
  - PSORIASIS [None]
  - HYPERTENSION [None]
  - POOR PERIPHERAL CIRCULATION [None]
  - ARTHRITIS [None]
